FAERS Safety Report 14266654 (Version 1)
Quarter: 2017Q4

REPORT INFORMATION
  Report Type: Spontaneous
  Country: US (occurrence: US)
  Receive Date: 20171211
  Receipt Date: 20171211
  Transmission Date: 20180321
  Serious: Yes (Other)
  Sender: FDA-Public Use
  Company Number: US-INGENUS PHARMACEUTICALS NJ, LLC-ING201712-000676

PATIENT
  Age: 73 Year
  Sex: Female

DRUGS (7)
  1. METOPROLOL. [Suspect]
     Active Substance: METOPROLOL
  2. HYDROCODONE [Suspect]
     Active Substance: HYDROCODONE
  3. MORPHINE SULFATE EXTENDED RELEASE [Suspect]
     Active Substance: MORPHINE SULFATE
     Indication: PAIN
  4. FUROSEMIDE. [Suspect]
     Active Substance: FUROSEMIDE
  5. MORPHINE SULFATE EXTENDED RELEASE [Suspect]
     Active Substance: MORPHINE SULFATE
     Route: 048
  6. CARISOPRODOL AND ASPIRIN [Suspect]
     Active Substance: ASPIRIN\CARISOPRODOL
  7. LEVOTHYROXINE. [Suspect]
     Active Substance: LEVOTHYROXINE

REACTIONS (3)
  - Extradural haematoma [Recovered/Resolved]
  - Muscular weakness [Recovered/Resolved]
  - Pain [Recovered/Resolved]
